FAERS Safety Report 6254616-0 (Version None)
Quarter: 2009Q3

REPORT INFORMATION
  Report Type: 
  Country: None (occurrence: None)
  Receive Date: 20090702
  Receipt Date: 20090617
  Transmission Date: 20100115
  Serious: Yes (Other)
  Sender: FDA-Public Use
  Company Number: A0794878A

PATIENT
  Age: 32 Year
  Sex: Male

DRUGS (1)
  1. ZYBAN [Suspect]
     Dosage: 150MG TWICE PER DAY
     Route: 048
     Dates: start: 20090605

REACTIONS (6)
  - ASTHMA [None]
  - CHEST PAIN [None]
  - COUGH [None]
  - DYSPNOEA [None]
  - INSOMNIA [None]
  - NASAL CONGESTION [None]
